FAERS Safety Report 6258907-9 (Version None)
Quarter: 2009Q3

REPORT INFORMATION
  Report Type: 
  Country: None (occurrence: None)
  Receive Date: 20090707
  Receipt Date: 20090703
  Transmission Date: 20100115
  Serious: Yes (Hospitalization, Disabling, Other)
  Sender: FDA-Public Use
  Company Number: FR-WYE-G03644409

PATIENT
  Sex: Male

DRUGS (3)
  1. TORISEL [Suspect]
     Indication: RENAL CANCER METASTATIC
     Route: 042
     Dates: start: 20080314, end: 20080901
  2. TORISEL [Suspect]
     Route: 042
     Dates: start: 20080929, end: 20090216
  3. TORISEL [Suspect]
     Route: 042
     Dates: start: 20090223, end: 20090316

REACTIONS (16)
  - ACNE [None]
  - BLOOD CHOLESTEROL INCREASED [None]
  - DIARRHOEA [None]
  - DISEASE PROGRESSION [None]
  - FATIGUE [None]
  - HEPATIC NECROSIS [None]
  - HYPERTRIGLYCERIDAEMIA [None]
  - INTERSTITIAL LUNG DISEASE [None]
  - LARYNGITIS [None]
  - LUNG NEOPLASM [None]
  - LYMPHOCYTIC INFILTRATION [None]
  - MALAISE [None]
  - PAIN [None]
  - PRODUCTIVE COUGH [None]
  - RASH [None]
  - SKIN TOXICITY [None]
